APPROVED DRUG PRODUCT: DEXAMETHASONE
Active Ingredient: DEXAMETHASONE
Strength: 1MG
Dosage Form/Route: TABLET;ORAL
Application: A084612 | Product #004 | TE Code: AB
Applicant: HIKMA PHARMACEUTICALS USA INC
Approved: Sep 15, 1983 | RLD: Yes | RS: Yes | Type: RX